FAERS Safety Report 10741474 (Version 2)
Quarter: 2015Q2

REPORT INFORMATION
  Report Type: Spontaneous
  Country: US (occurrence: None)
  Receive Date: 20150123
  Receipt Date: 20150504
  Transmission Date: 20150821
  Serious: Yes (Other)
  Sender: FDA-Public Use
  Company Number: ADR-2015-00155

PATIENT
  Age: 61 Year
  Sex: Female

DRUGS (8)
  1. ORAL OXYCODONE [Suspect]
     Active Substance: OXYCODONE
  2. CAPSACIN PATCH [Concomitant]
  3. VALIUM [Suspect]
     Active Substance: DIAZEPAM
  4. MORPHINE [Suspect]
     Active Substance: MORPHINE
     Indication: PAIN
  5. BACLOFEN. [Suspect]
     Active Substance: BACLOFEN
     Indication: PAIN
  6. BUPIVACAINE INTRATHECAL [Suspect]
     Active Substance: BUPIVACAINE
  7. LIDODERM [Suspect]
     Active Substance: LIDOCAINE
  8. CLONIDINE. [Suspect]
     Active Substance: CLONIDINE

REACTIONS (7)
  - Somnolence [None]
  - Respiratory disorder [None]
  - Oxygen saturation decreased [None]
  - Hypersomnia [None]
  - Prescribed overdose [None]
  - Weight decreased [None]
  - General physical health deterioration [None]
